FAERS Safety Report 23173726 (Version 2)
Quarter: 2023Q4

REPORT INFORMATION
  Report Type: Report from Study
  Country: US (occurrence: US)
  Receive Date: 20231111
  Receipt Date: 20231117
  Transmission Date: 20240109
  Serious: Yes (Hospitalization, Other)
  Sender: FDA-Public Use
  Company Number: US-BoehringerIngelheim-2023-BI-270966

PATIENT
  Age: 15 Year
  Sex: Female
  Weight: 143.5 kg

DRUGS (30)
  1. NINTEDANIB [Suspect]
     Active Substance: NINTEDANIB
     Indication: Interstitial lung disease
     Route: 048
     Dates: start: 20231018
  2. XELJANZ [Suspect]
     Active Substance: TOFACITINIB CITRATE
     Indication: Dermatomyositis
     Route: 048
  3. METHYLPREDNISOLONE [Suspect]
     Active Substance: METHYLPREDNISOLONE
     Indication: Dermatomyositis
     Route: 042
  4. PREDNISONE [Suspect]
     Active Substance: PREDNISONE
     Indication: Dermatomyositis
     Route: 048
     Dates: start: 20231024
  5. PREDNISONE [Suspect]
     Active Substance: PREDNISONE
     Route: 048
  6. MELOXICAM [Suspect]
     Active Substance: MELOXICAM
     Indication: Dermatomyositis
     Route: 048
     Dates: start: 20231026
  7. TYLENOL [Concomitant]
     Active Substance: ACETAMINOPHEN
     Indication: Dermatomyositis
     Route: 048
  8. ALBUTEROL [Concomitant]
     Active Substance: ALBUTEROL
     Indication: Asthma
     Dosage: 2-4 PUFF
     Route: 055
  9. ZYRTEC [Concomitant]
     Active Substance: CETIRIZINE HYDROCHLORIDE
     Indication: Dermatomyositis
     Route: 048
  10. LEXAPRO [Concomitant]
     Active Substance: ESCITALOPRAM OXALATE
     Indication: Depression
     Route: 048
  11. ADVAIR HFA [Concomitant]
     Active Substance: FLUTICASONE PROPIONATE\SALMETEROL XINAFOATE
     Indication: Asthma
     Dosage: 4 PUFFS
     Route: 055
  12. GABAPENTIN [Concomitant]
     Active Substance: GABAPENTIN
     Indication: Myalgia
     Route: 048
  13. GLUCAGON [Concomitant]
     Active Substance: GLUCAGON\GLUCAGON HYDROCHLORIDE\WATER
     Indication: Diabetes mellitus
     Route: 045
  14. ATARAX/Hydroxyzine [Concomitant]
     Indication: Sleep disorder
     Route: 048
  15. PRIVIGEN [Concomitant]
     Active Substance: HUMAN IMMUNOGLOBULIN G
     Indication: Dermatomyositis
     Route: 042
  16. INSULIN NOS [Concomitant]
     Active Substance: INSULIN NOS
     Indication: Diabetes mellitus
     Dosage: UP TO 80 UNITS
     Route: 058
  17. HUMALOG [Concomitant]
     Active Substance: INSULIN LISPRO
     Indication: Diabetes mellitus
     Dosage: UP TO 60 UNITS
     Route: 058
  18. IMODIUM [Concomitant]
     Active Substance: LOPERAMIDE HYDROCHLORIDE
     Indication: Dermatomyositis
     Route: 048
  19. IMODIUM [Concomitant]
     Active Substance: LOPERAMIDE HYDROCHLORIDE
     Indication: Diarrhoea
  20. MELATONIN [Concomitant]
     Active Substance: MELATONIN
     Indication: Sleep disorder
     Route: 048
  21. ZOFRAN [Concomitant]
     Active Substance: ONDANSETRON HYDROCHLORIDE
     Indication: Dermatomyositis
     Route: 048
  22. ZOFRAN [Concomitant]
     Active Substance: ONDANSETRON HYDROCHLORIDE
     Indication: Nausea
  23. OXYCODONE [Concomitant]
     Active Substance: OXYCODONE
     Indication: Myalgia
     Route: 048
  24. RITUXIMAB [Concomitant]
     Active Substance: RITUXIMAB
     Indication: Dermatomyositis
     Route: 042
  25. BACTRIM DS [Concomitant]
     Active Substance: SULFAMETHOXAZOLE\TRIMETHOPRIM
     Indication: Dermatomyositis
     Route: 048
  26. SPIRIVA [Concomitant]
     Active Substance: TIOTROPIUM BROMIDE MONOHYDRATE
     Indication: Asthma
     Dosage: 2 PUFFS
     Route: 055
  27. TUMS [Concomitant]
     Active Substance: CALCIUM CARBONATE
     Indication: Dermatomyositis
     Dosage: 3 TABS
     Route: 048
  28. VITAMIN D [Concomitant]
     Active Substance: VITAMIN D NOS
     Indication: Dermatomyositis
     Route: 048
  29. LOPERAMIDE [Concomitant]
     Active Substance: LOPERAMIDE
     Indication: Dermatomyositis
     Route: 048
  30. LOPERAMIDE [Concomitant]
     Active Substance: LOPERAMIDE
     Indication: Diarrhoea

REACTIONS (4)
  - Headache [Not Recovered/Not Resolved]
  - Vomiting [Not Recovered/Not Resolved]
  - Hypertension [Not Recovered/Not Resolved]
  - Atrial thrombosis [Not Recovered/Not Resolved]

NARRATIVE: CASE EVENT DATE: 20231101
